FAERS Safety Report 24739190 (Version 3)
Quarter: 2025Q3

REPORT INFORMATION
  Report Type: Report from Study
  Country: EU (occurrence: EU)
  Receive Date: 20241216
  Receipt Date: 20250814
  Transmission Date: 20251020
  Serious: Yes (Other)
  Sender: ABBVIE
  Company Number: EU-JNJFOC-20241233860

PATIENT
  Age: 73 Year
  Sex: Male

DRUGS (1)
  1. IMBRUVICA [Suspect]
     Active Substance: IBRUTINIB
     Indication: Chronic lymphocytic leukaemia
     Route: 048
     Dates: start: 20241021

REACTIONS (1)
  - Pyelonephritis [Recovered/Resolved]

NARRATIVE: CASE EVENT DATE: 20241113
